FAERS Safety Report 5081183-X (Version None)
Quarter: 2006Q3

REPORT INFORMATION
  Report Type: 
  Country: None (occurrence: None)
  Receive Date: 20060810
  Receipt Date: 20060804
  Transmission Date: 20061208
  Serious: Yes (Death, Other)
  Sender: FDA-Public Use
  Company Number: 2006-08-0246

PATIENT
  Sex: Male

DRUGS (3)
  1. INTEGRILIN [Suspect]
     Indication: ACUTE MYOCARDIAL INFARCTION
     Dosage: INTRAVENOUS
     Route: 042
  2. ASPIRIN [Concomitant]
  3. PLAVIX [Concomitant]

REACTIONS (6)
  - BLOOD CREATINE PHOSPHOKINASE MB INCREASED [None]
  - CAROTID ARTERY DISEASE [None]
  - CREATININE RENAL CLEARANCE DECREASED [None]
  - HAEMORRHAGE INTRACRANIAL [None]
  - HEART RATE DECREASED [None]
  - TROPONIN INCREASED [None]
